FAERS Safety Report 6283172-6 (Version None)
Quarter: 2009Q3

REPORT INFORMATION
  Report Type: 
  Country: None (occurrence: None)
  Receive Date: 20090724
  Receipt Date: 20090715
  Transmission Date: 20100115
  Serious: Yes (Hospitalization)
  Sender: FDA-Public Use
  Company Number: B0584091A

PATIENT
  Sex: Male

DRUGS (1)
  1. ZINNAT [Suspect]
     Indication: RHINITIS
     Route: 048
     Dates: start: 20090507, end: 20090512

REACTIONS (7)
  - CYTOLYTIC HEPATITIS [None]
  - DIZZINESS [None]
  - HEPATIC STEATOSIS [None]
  - HEPATITIS [None]
  - NEPHROPATHY [None]
  - RENAL FAILURE ACUTE [None]
  - TUBULOINTERSTITIAL NEPHRITIS [None]
